FAERS Safety Report 23117001 (Version 2)
Quarter: 2023Q4

REPORT INFORMATION
  Report Type: Spontaneous
  Country: JP (occurrence: JP)
  Receive Date: 20231027
  Receipt Date: 20231109
  Transmission Date: 20240110
  Serious: Yes (Hospitalization, Disabling, Other)
  Sender: FDA-Public Use
  Company Number: JP-GSKJP-JP2023JPN141436AA

PATIENT

DRUGS (1)
  1. DAPRODUSTAT [Suspect]
     Active Substance: DAPRODUSTAT
     Indication: Nephrogenic anaemia
     Dosage: 2 MG
     Route: 048

REACTIONS (5)
  - Thrombosis [Unknown]
  - Renal impairment [Unknown]
  - Pain in extremity [Unknown]
  - Feeling abnormal [Unknown]
  - Dehydration [Unknown]
